FAERS Safety Report 6980481-X (Version None)
Quarter: 2010Q3

REPORT INFORMATION
  Report Type: 
  Country: None (occurrence: None)
  Receive Date: 20100909
  Receipt Date: 20100901
  Transmission Date: 20110219
  Serious: Yes (Hospitalization)
  Sender: FDA-Public Use
  Company Number: 017775

PATIENT
  Sex: Female
  Weight: 95 kg

DRUGS (18)
  1. LACOSAMIDE [Suspect]
     Indication: DIABETIC NEUROPATHY
     Dosage: 300 MG BID, ORAL
     Route: 048
     Dates: start: 20100624, end: 20100823
  2. LACOSAMIDE [Suspect]
  3. LACOSAMIDE [Suspect]
  4. LACOSAMIDE [Suspect]
  5. LACOSAMIDE [Suspect]
  6. LACOSAMIDE [Suspect]
  7. LACOSAMIDE [Suspect]
  8. LACOSAMIDE [Suspect]
  9. LACOSAMIDE [Suspect]
  10. LACOSAMIDE [Suspect]
  11. LACOSAMIDE [Suspect]
  12. LEVOTHYROXINE SODIUM [Concomitant]
  13. METFORMIN [Concomitant]
  14. ASPIRIN [Concomitant]
  15. SIMVASTATIN [Concomitant]
  16. BLOPRESS PLUS [Concomitant]
  17. HCT [Concomitant]
  18. CLOPIDOGREL [Concomitant]

REACTIONS (1)
  - LYMPHOMA [None]
